FAERS Safety Report 18807709 (Version 1)
Quarter: 2021Q1

REPORT INFORMATION
  Report Type: Other
  Country: CN (occurrence: CN)
  Receive Date: 20210129
  Receipt Date: 20210129
  Transmission Date: 20210419
  Serious: Yes (Other)
  Sender: FDA-Public Use
  Company Number: CN-ROCHE-2754469

PATIENT

DRUGS (4)
  1. CAPECITABINE. [Suspect]
     Active Substance: CAPECITABINE
     Indication: GALLBLADDER CANCER
  2. CAPECITABINE. [Suspect]
     Active Substance: CAPECITABINE
     Indication: GASTRIC CANCER
     Dosage: AFTER BREAKFAST AND DINNER, FOR 14 CONSECUTIVE DAYS, REPEATED FOR 3 WEEKS AS A COURSE OF TREATMENT
     Route: 048
  3. CAPECITABINE. [Suspect]
     Active Substance: CAPECITABINE
     Indication: COLORECTAL CANCER
     Dosage: AFTER BREAKFAST AND DINNER, FOR 21 CONSECUTIVE DAYS, REPEATED FOR 4 WEEKS AS A COURSE OF TREATMENT
     Route: 048
  4. CAPECITABINE. [Suspect]
     Active Substance: CAPECITABINE
     Indication: OESOPHAGEAL CARCINOMA

REACTIONS (1)
  - Renal impairment [Unknown]
